FAERS Safety Report 6709508-7 (Version None)
Quarter: 2010Q2

REPORT INFORMATION
  Report Type: 
  Country: None (occurrence: None)
  Receive Date: 20100504
  Receipt Date: 20100423
  Transmission Date: 20101027
  Serious: Yes (Hospitalization, Other)
  Sender: FDA-Public Use
  Company Number: JP-PFIZER INC-2010044514

PATIENT
  Age: 58 Year
  Sex: Female

DRUGS (7)
  1. SOLANAX [Suspect]
     Dosage: 0.4 MG, 3X/DAY
     Dates: start: 20090526, end: 20100414
  2. ZOLOFT [Suspect]
     Dosage: 25 MG, 1X/DAY
     Dates: start: 20090521
  3. MYSLEE [Suspect]
     Dosage: 5 MG, 1X/DAY
     Route: 048
     Dates: start: 20081112
  4. TAMOXIFEN CITRATE [Suspect]
     Dosage: 20 MG, 1X/DAY
     Route: 048
     Dates: start: 20100323
  5. TAKEPRON [Concomitant]
     Dosage: UNK
     Route: 048
     Dates: start: 20081014
  6. OXYCONTIN [Concomitant]
     Dosage: UNK
     Route: 048
     Dates: start: 20081006
  7. HOKUNALIN [Concomitant]
     Dosage: UNK
     Dates: start: 20081014

REACTIONS (3)
  - ALTERED STATE OF CONSCIOUSNESS [None]
  - DELIRIUM [None]
  - PLEURAL EFFUSION [None]
